FAERS Safety Report 7315195-X (Version None)
Quarter: 2011Q1

REPORT INFORMATION
  Report Type: 
  Country: None (occurrence: None)
  Receive Date: 20110225
  Receipt Date: 20110215
  Transmission Date: 20110831
  Serious: Yes (Other)
  Sender: FDA-Public Use
  Company Number: US-ROCHE-734467

PATIENT
  Sex: Male
  Weight: 65.8 kg

DRUGS (1)
  1. ACCUTANE [Suspect]
     Route: 048
     Dates: start: 19881201, end: 19990801

REACTIONS (10)
  - INFLAMMATORY BOWEL DISEASE [None]
  - NAUSEA [None]
  - CROHN'S DISEASE [None]
  - RECTAL HAEMORRHAGE [None]
  - ARTHRALGIA [None]
  - COLITIS ULCERATIVE [None]
  - CHOLANGITIS SCLEROSING [None]
  - ABDOMINAL PAIN [None]
  - DEPRESSION [None]
  - UPPER RESPIRATORY TRACT INFECTION [None]
